FAERS Safety Report 8076584-1 (Version None)
Quarter: 2012Q1

REPORT INFORMATION
  Report Type: 
  Country: None (occurrence: None)
  Receive Date: 20120127
  Receipt Date: 20111114
  Transmission Date: 20120608
  Serious: Yes (Other)
  Sender: FDA-Public Use
  Company Number: CA-JNJFOC-20120108407

PATIENT
  Sex: Female
  Weight: 89.81 kg

DRUGS (2)
  1. REMICADE [Suspect]
     Indication: COLITIS ULCERATIVE
     Route: 042
     Dates: start: 20111114, end: 20111114
  2. REMICADE [Suspect]
     Route: 042

REACTIONS (5)
  - PHARYNGEAL HYPOAESTHESIA [None]
  - HYPERTENSION [None]
  - FLUSHING [None]
  - HEART RATE INCREASED [None]
  - HYPOAESTHESIA ORAL [None]
